FAERS Safety Report 8388266-7 (Version None)
Quarter: 2012Q2

REPORT INFORMATION
  Report Type: 
  Country: None (occurrence: None)
  Receive Date: 20120525
  Receipt Date: 20120515
  Transmission Date: 20120825
  Serious: No
  Sender: FDA-Public Use
  Company Number: US-ENDO PHARMACEUTICALS INC.-OPER20120636

PATIENT
  Sex: Male

DRUGS (2)
  1. OPANA ER [Suspect]
     Indication: NECK PAIN
     Route: 048
  2. OPANA ER [Suspect]
     Indication: BACK PAIN
     Route: 048

REACTIONS (1)
  - DRUG INEFFECTIVE [None]
